FAERS Safety Report 9450933 (Version 1)
Quarter: 2013Q3

REPORT INFORMATION
  Report Type: Report from Study
  Country: DE (occurrence: DE)
  Receive Date: 20130809
  Receipt Date: 20130809
  Transmission Date: 20140515
  Serious: Yes (Death, Other)
  Sender: FDA-Public Use
  Company Number: PHHO2006DE022613

PATIENT
  Age: 57 Year
  Sex: Male

DRUGS (9)
  1. PLACEBO [Suspect]
     Indication: NEUROENDOCRINE TUMOUR
     Dosage: UNK
     Dates: start: 20020703, end: 20041015
  2. SANDOSTATIN LAR [Suspect]
     Indication: NEUROENDOCRINE TUMOUR
     Dosage: 20 MG, UNK
     Dates: start: 20050315
  3. LISINOPRIL [Concomitant]
  4. PRINZIDE [Concomitant]
  5. CANDESARTAN [Concomitant]
  6. METOPROLOL [Concomitant]
     Dosage: UNK
  7. LOPERAMID [Concomitant]
  8. SACCHAROMYCES BOULARDII [Concomitant]
  9. FELODIPINE [Concomitant]

REACTIONS (2)
  - Myocardial infarction [Fatal]
  - Malignant neoplasm progression [Unknown]
